FAERS Safety Report 18455048 (Version 3)
Quarter: 2021Q1

REPORT INFORMATION
  Report Type: Report from Study
  Country: GB (occurrence: GB)
  Receive Date: 20201102
  Receipt Date: 20210110
  Transmission Date: 20210419
  Serious: Yes (Hospitalization, Other)
  Sender: FDA-Public Use
  Company Number: GB-JNJFOC-20200937765

PATIENT
  Age: 4 Decade
  Sex: Female

DRUGS (5)
  1. SERTRALINE [Concomitant]
     Active Substance: SERTRALINE HYDROCHLORIDE
     Route: 048
  2. STELARA [Suspect]
     Active Substance: USTEKINUMAB
     Indication: PSORIASIS
     Route: 058
     Dates: start: 20160304
  3. SERTRALINE [Concomitant]
     Active Substance: SERTRALINE HYDROCHLORIDE
     Route: 048
  4. STELARA [Suspect]
     Active Substance: USTEKINUMAB
  5. INFLUENZA VACCINE [Concomitant]
     Active Substance: INFLUENZA VIRUS VACCINE
     Dosage: SPLIT VIRION, INACTIVATED
     Route: 065

REACTIONS (3)
  - Postoperative wound complication [Unknown]
  - Wound infection [Recovered/Resolved]
  - Appendicitis perforated [Unknown]

NARRATIVE: CASE EVENT DATE: 202007
